FAERS Safety Report 5053262-4 (Version None)
Quarter: 2006Q3

REPORT INFORMATION
  Report Type: 
  Country: None (occurrence: None)
  Receive Date: 20060712
  Receipt Date: 20060704
  Transmission Date: 20061208
  Serious: Yes (Life-Threatening)
  Sender: FDA-Public Use
  Company Number: USA-2006-0024402

PATIENT
  Age: 59 Year
  Sex: Female

DRUGS (6)
  1. CEFDITOREN PIVOXIL [Suspect]
     Indication: BRONCHITIS ACUTE
     Dosage: 100 MG, DAILY, ORAL
     Route: 048
     Dates: start: 20060501, end: 20060501
  2. PA [Concomitant]
  3. SIMVASTATIN [Concomitant]
  4. RADEN [Concomitant]
  5. DEPAS                  (ETIZOLAM) [Concomitant]
  6. URINORM (BENZBROMARONE) [Concomitant]

REACTIONS (13)
  - BLOOD PRESSURE IMMEASURABLE [None]
  - DIZZINESS [None]
  - DRUG INEFFECTIVE [None]
  - FEELING ABNORMAL [None]
  - HYPOTENSION [None]
  - PALLOR [None]
  - PHARYNGEAL ERYTHEMA [None]
  - PHARYNGOLARYNGEAL PAIN [None]
  - PRODUCTIVE COUGH [None]
  - PRURITUS [None]
  - RASH GENERALISED [None]
  - SENSORY DISTURBANCE [None]
  - URTICARIA [None]
